FAERS Safety Report 7393528-6 (Version None)
Quarter: 2011Q2

REPORT INFORMATION
  Report Type: 
  Country: None (occurrence: None)
  Receive Date: 20110405
  Receipt Date: 20110321
  Transmission Date: 20111010
  Serious: No
  Sender: FDA-Public Use
  Company Number: US-JNJFOC-20110310633

PATIENT
  Sex: Male
  Weight: 89.81 kg

DRUGS (1)
  1. DURAGESIC-50 [Suspect]
     Indication: PAIN
     Route: 062

REACTIONS (6)
  - PYREXIA [None]
  - WITHDRAWAL SYNDROME [None]
  - HYPERHIDROSIS [None]
  - BLOOD GLUCOSE ABNORMAL [None]
  - INSOMNIA [None]
  - DRUG DOSE OMISSION [None]
